FAERS Safety Report 10017494 (Version 1)
Quarter: 2014Q1

REPORT INFORMATION
  Report Type: Report from Study
  Country: FR (occurrence: FR)
  Receive Date: 20140318
  Receipt Date: 20140318
  Transmission Date: 20141002
  Serious: Yes (Hospitalization)
  Sender: FDA-Public Use
  Company Number: FR-ROCHE-1361801

PATIENT
  Sex: Female

DRUGS (9)
  1. RITUXIMAB [Suspect]
     Indication: RHEUMATOID ARTHRITIS
     Route: 041
     Dates: start: 20080422
  2. RITUXIMAB [Suspect]
     Route: 041
     Dates: start: 20080507
  3. RITUXIMAB [Suspect]
     Route: 041
     Dates: start: 20090211
  4. RITUXIMAB [Suspect]
     Route: 041
     Dates: start: 20090226
  5. RITUXIMAB [Suspect]
     Route: 041
     Dates: start: 20090902
  6. RITUXIMAB [Suspect]
     Route: 041
     Dates: start: 20090915, end: 20100226
  7. ROACTEMRA [Concomitant]
     Indication: RHEUMATOID ARTHRITIS
     Route: 065
  8. CORTANCYL [Concomitant]
     Route: 065
  9. TAHOR [Concomitant]

REACTIONS (12)
  - Rash [Not Recovered/Not Resolved]
  - Gastric polyps [Not Recovered/Not Resolved]
  - Bronchitis [Recovered/Resolved]
  - Asthenia [Not Recovered/Not Resolved]
  - Anaemia [Recovered/Resolved]
  - Fall [Recovered/Resolved]
  - Rotator cuff syndrome [Not Recovered/Not Resolved]
  - Iron deficiency anaemia [Recovered/Resolved]
  - Abdominal pain [Unknown]
  - Dyspepsia [Unknown]
  - Faeces discoloured [Unknown]
  - Tendon rupture [Recovered/Resolved]
